FAERS Safety Report 5124479-5 (Version None)
Quarter: 2006Q4

REPORT INFORMATION
  Report Type: 
  Country: None (occurrence: None)
  Receive Date: 20061006
  Receipt Date: 20060920
  Transmission Date: 20070319
  Serious: No
  Sender: FDA-Public Use
  Company Number: D0050944A

PATIENT
  Sex: Male

DRUGS (1)
  1. EPIVIR [Suspect]
     Indication: HEPATITIS CHRONIC ACTIVE

REACTIONS (2)
  - HYPOGLYCAEMIA [None]
  - NEUTROPENIA [None]
